FAERS Safety Report 7849864-X (Version None)
Quarter: 2011Q4

REPORT INFORMATION
  Report Type: 
  Country: None (occurrence: None)
  Receive Date: 20111025
  Receipt Date: 20111025
  Transmission Date: 20120403
  Serious: No
  Sender: FDA-Public Use
  Company Number: None

PATIENT
  Sex: Female
  Weight: 72 kg

DRUGS (2)
  1. PACLITAXEL [Suspect]
     Dosage: 1170 MG
  2. HERCEPTIN [Suspect]
     Dosage: 1300 MG

REACTIONS (5)
  - SYNCOPE [None]
  - UNRESPONSIVE TO STIMULI [None]
  - ACUTE RESPIRATORY FAILURE [None]
  - CARDIO-RESPIRATORY ARREST [None]
  - HYPOTENSION [None]
